FAERS Safety Report 9702172 (Version 1)
Quarter: 2013Q4

REPORT INFORMATION
  Report Type: Spontaneous
  Country: US (occurrence: None)
  Receive Date: 20131119
  Receipt Date: 20131119
  Transmission Date: 20140711
  Serious: Yes (Other)
  Sender: FDA-Public Use
  Company Number: 2009168

PATIENT
  Age: 49 Year
  Sex: Male
  Weight: 113.64 kg

DRUGS (1)
  1. BUPIVACAINE HCL [Suspect]
     Indication: ARTHRALGIA
     Dosage: INJECTION
     Dates: start: 20131029

REACTIONS (2)
  - Pain [None]
  - Staphylococcus test positive [None]
